FAERS Safety Report 22248238 (Version 6)
Quarter: 2024Q4

REPORT INFORMATION
  Report Type: Spontaneous
  Country: BR (occurrence: BR)
  Receive Date: 20230425
  Receipt Date: 20241017
  Transmission Date: 20250115
  Serious: Yes (Death, Hospitalization, Other)
  Sender: NOVARTIS
  Company Number: BR-002147023-NVSC2023BR070046

PATIENT
  Age: 40 Year
  Sex: Male
  Weight: 91.4 kg

DRUGS (9)
  1. KYMRIAH [Suspect]
     Active Substance: TISAGENLECLEUCEL
     Indication: Diffuse large B-cell lymphoma
     Dosage: (1,2 X 10E6 A 6 X 10E8 CEL EM ISP INF 1 A 3 BOLS PLAS TRANS 10 ML A 50) ONCE/SINGLE
     Route: 042
     Dates: start: 20230313, end: 20230313
  2. MAXIDEX [Suspect]
     Active Substance: DEXAMETHASONE
     Indication: Product used for unknown indication
     Dosage: UNK
     Route: 065
  3. ACYCLOVIR [Suspect]
     Active Substance: ACYCLOVIR
     Indication: Product used for unknown indication
     Dosage: UNK
     Route: 065
  4. BACTRIM [Concomitant]
     Active Substance: SULFAMETHOXAZOLE\TRIMETHOPRIM
     Indication: Product used for unknown indication
     Dosage: UNK
     Route: 065
  5. MORPHINE [Concomitant]
     Active Substance: MORPHINE
     Indication: Product used for unknown indication
     Dosage: UNK
     Route: 065
  6. BUPRENORPHINE [Concomitant]
     Active Substance: BUPRENORPHINE
     Indication: Product used for unknown indication
     Dosage: UNK
     Route: 065
  7. METAMIZOLE SODIUM [Concomitant]
     Active Substance: METAMIZOLE SODIUM
     Indication: Product used for unknown indication
     Dosage: UNK
     Route: 065
  8. METHYLPREDNISOLONE [Concomitant]
     Active Substance: METHYLPREDNISOLONE
     Indication: Product used for unknown indication
     Dosage: 1000 MG, QD, FOR 3 DAYS
     Route: 065
  9. METHYLPREDNISOLONE [Concomitant]
     Active Substance: METHYLPREDNISOLONE
     Dosage: 800 MG
     Route: 065

REACTIONS (20)
  - Haemophagocytic lymphohistiocytosis [Fatal]
  - Septic shock [Fatal]
  - Acute hepatic failure [Fatal]
  - Non-Hodgkin^s lymphoma [Fatal]
  - Spinal column injury [Fatal]
  - Odynophagia [Unknown]
  - Asthenia [Unknown]
  - Cytokine release syndrome [Unknown]
  - Oxygen saturation decreased [Unknown]
  - Heart rate increased [Unknown]
  - Pyrexia [Unknown]
  - Ulcer [Unknown]
  - Skin lesion [Unknown]
  - Extramedullary haemopoiesis [Unknown]
  - Haemorrhage [Unknown]
  - Hepatic function abnormal [Unknown]
  - Pancytopenia [Unknown]
  - Renal impairment [Unknown]
  - Blood pressure increased [Unknown]
  - Back disorder [Unknown]

NARRATIVE: CASE EVENT DATE: 20230320
